FAERS Safety Report 5866666-4 (Version None)
Quarter: 2008Q3

REPORT INFORMATION
  Report Type: 
  Country: None (occurrence: None)
  Receive Date: 20080902
  Receipt Date: 20080826
  Transmission Date: 20090109
  Serious: Yes (Death)
  Sender: FDA-Public Use
  Company Number: US-AMGEN-QUU303930

PATIENT
  Sex: Female

DRUGS (6)
  1. ARANESP [Suspect]
     Indication: ANAEMIA OF MALIGNANT DISEASE
     Dates: start: 20071120, end: 20071218
  2. CISPLATIN [Concomitant]
  3. TAXOL [Concomitant]
  4. AREDIA [Concomitant]
  5. CYTOXAN [Concomitant]
  6. UNSPECIFIED RADIATION THERAPY [Concomitant]
     Dates: start: 20070718, end: 20070807

REACTIONS (1)
  - DEATH [None]
